FAERS Safety Report 4352957-5 (Version None)
Quarter: 2004Q2

REPORT INFORMATION
  Report Type: 
  Country: None (occurrence: None)
  Receive Date: 20040430
  Receipt Date: 20040116
  Transmission Date: 20050107
  Serious: No
  Sender: FDA-Public Use
  Company Number: 204235

PATIENT
  Age: 42 Year
  Sex: Female
  Weight: 72.7 kg

DRUGS (9)
  1. XOLAIR [Suspect]
     Indication: ASTHMA
     Dosage: 300 MG, Q4W, SUBCUTANEOUS
     Route: 058
     Dates: start: 20031216
  2. ADVAIR (SALMETEROL XINAFOATE, FLUTCASONE PROPIONATE) [Concomitant]
  3. ZANTAC [Concomitant]
  4. ALLEGRA [Concomitant]
  5. SINGULAIR [Concomitant]
  6. TRAZODONE (TRAZODONE HYDROCHLORIDE) [Concomitant]
  7. KLONOPIN [Concomitant]
  8. VICODIN (HYDROCODONE BITARTRATE, ACETAMINOPHEN) [Concomitant]
  9. OXYGEN (OXYGEN) [Concomitant]

REACTIONS (2)
  - THROAT TIGHTNESS [None]
  - WHEEZING [None]
